FAERS Safety Report 4375073-5 (Version None)
Quarter: 2004Q2

REPORT INFORMATION
  Report Type: 
  Country: None (occurrence: None)
  Receive Date: 20040603
  Receipt Date: 20040527
  Transmission Date: 20050107
  Serious: Yes (Hospitalization, Other)
  Sender: FDA-Public Use
  Company Number: 2003-05-0955

PATIENT
  Age: 38 Year
  Sex: Female

DRUGS (6)
  1. INTRON A [Suspect]
     Indication: HEPATITIS C
     Dosage: 10 M U QD TIW INTRAMUSCULAR
     Route: 030
     Dates: start: 20030407, end: 20030430
  2. INTRON A [Suspect]
     Indication: HEPATITIS C
     Dosage: 10 M U QD TIW INTRAMUSCULAR
     Route: 030
     Dates: start: 20030407, end: 20030812
  3. INTRON A [Suspect]
     Indication: HEPATITIS C
     Dosage: 10 M U QD TIW INTRAMUSCULAR
     Route: 030
     Dates: start: 20030512, end: 20030812
  4. REBETOL [Suspect]
     Indication: HEPATITIS C
     Dosage: 600 MG QD ORAL
     Route: 048
     Dates: start: 20030408, end: 20030430
  5. REBETOL [Suspect]
     Indication: HEPATITIS C
     Dosage: 600 MG QD ORAL
     Route: 048
     Dates: start: 20030408, end: 20030812
  6. REBETOL [Suspect]
     Indication: HEPATITIS C
     Dosage: 600 MG QD ORAL
     Route: 048
     Dates: start: 20030512, end: 20030812

REACTIONS (4)
  - ALOPECIA [None]
  - COLITIS ISCHAEMIC [None]
  - DIARRHOEA [None]
  - MELAENA [None]
